FAERS Safety Report 18184355 (Version 3)
Quarter: 2020Q4

REPORT INFORMATION
  Report Type: Report from Study
  Country: None (occurrence: US)
  Receive Date: 20200824
  Receipt Date: 20201119
  Transmission Date: 20210113
  Serious: Yes (Other)
  Sender: FDA-Public Use
  Company Number: US-ABBVIE-20K-163-3530038-00

PATIENT
  Sex: Female
  Weight: 65.83 kg

DRUGS (4)
  1. DIGOXIN. [Concomitant]
     Active Substance: DIGOXIN
     Indication: CARDIAC DISORDER
  2. PRIMIDONE. [Concomitant]
     Active Substance: PRIMIDONE
     Indication: HEAD TITUBATION
  3. HUMIRA [Suspect]
     Active Substance: ADALIMUMAB
     Indication: PSORIASIS
     Route: 058
     Dates: start: 20160819
  4. METOPROLOL. [Concomitant]
     Active Substance: METOPROLOL
     Indication: CARDIAC DISORDER

REACTIONS (4)
  - Facial neuralgia [Recovered/Resolved]
  - Pain [Not Recovered/Not Resolved]
  - Benign neoplasm [Unknown]
  - Sleep disorder [Unknown]
